FAERS Safety Report 19415811 (Version 1)
Quarter: 2021Q2

REPORT INFORMATION
  Report Type: Spontaneous
  Country: US (occurrence: US)
  Receive Date: 20210615
  Receipt Date: 20210615
  Transmission Date: 20210717
  Serious: No
  Sender: FDA-Public Use
  Company Number: US-ALLERGAN-2021822US

PATIENT
  Sex: Female

DRUGS (1)
  1. KYBELLA [Suspect]
     Active Substance: DEOXYCHOLIC ACID
     Indication: OFF LABEL USE
     Dosage: UNK UNK, SINGLE
     Route: 065

REACTIONS (3)
  - Injection site bruising [Recovered/Resolved]
  - Off label use [Unknown]
  - Skin depigmentation [Recovered/Resolved]
